FAERS Safety Report 6552430-X (Version None)
Quarter: 2010Q1

REPORT INFORMATION
  Report Type: 
  Country: None (occurrence: None)
  Receive Date: 20100126
  Receipt Date: 20100115
  Transmission Date: 20100710
  Serious: Yes (Hospitalization)
  Sender: FDA-Public Use
  Company Number: JP-ASTRAZENECA-2009SE28656

PATIENT
  Age: 86 Year
  Sex: Male

DRUGS (22)
  1. MEROPEN [Suspect]
     Indication: ESCHERICHIA BACTERAEMIA
     Route: 042
     Dates: start: 20091023, end: 20091027
  2. CIPROXAN [Concomitant]
     Indication: PNEUMONIA PRIMARY ATYPICAL
     Dates: start: 20091015, end: 20091020
  3. CIPROXAN [Concomitant]
     Dates: start: 20091102, end: 20091102
  4. CIPROXAN [Concomitant]
     Dates: start: 20091103, end: 20091106
  5. CAPISTEN [Concomitant]
     Route: 030
     Dates: start: 20091015, end: 20091015
  6. REMINARON [Concomitant]
     Dates: start: 20091018, end: 20091024
  7. NEUART [Concomitant]
     Dates: start: 20091018, end: 20091020
  8. MIRACLID [Concomitant]
     Dates: start: 20091018, end: 20091019
  9. MIRACLID [Concomitant]
     Dates: start: 20091020, end: 20091020
  10. INOVAN [Concomitant]
     Dates: start: 20091018, end: 20091018
  11. INOVAN [Concomitant]
     Dates: start: 20091019, end: 20091021
  12. ZANTEC [Concomitant]
     Dates: start: 20091018, end: 20091021
  13. CEFAPICOL [Concomitant]
     Dates: start: 20091020, end: 20091020
  14. CEFAPICOL [Concomitant]
     Dates: start: 20091021, end: 20091022
  15. NEO-MINOPHAGEN [Concomitant]
     Dates: start: 20091026, end: 20091031
  16. NEO-MINOPHAGEN [Concomitant]
     Dates: start: 20091101, end: 20091104
  17. NEO-MINOPHAGEN [Concomitant]
     Dates: start: 20091105, end: 20091105
  18. NEO-MINOPHAGEN [Concomitant]
     Dates: start: 20091106, end: 20091114
  19. HABEKACIN [Concomitant]
     Dates: start: 20091027, end: 20091027
  20. HABEKACIN [Concomitant]
     Dates: start: 20091028, end: 20091030
  21. HABEKACIN [Concomitant]
     Dates: start: 20091101, end: 20091101
  22. FERRICON [Concomitant]
     Dates: start: 20091106, end: 20091114

REACTIONS (1)
  - HYPERBILIRUBINAEMIA [None]
